FAERS Safety Report 7586029-3 (Version None)
Quarter: 2011Q2

REPORT INFORMATION
  Report Type: 
  Country: None (occurrence: None)
  Receive Date: 20110629
  Receipt Date: 20110629
  Transmission Date: 20111010
  Serious: Yes (Other)
  Sender: FDA-Public Use
  Company Number: None

PATIENT
  Age: 46 Year
  Sex: Female
  Weight: 72.5755 kg

DRUGS (1)
  1. PRISTIQ [Suspect]
     Indication: DEPRESSION
     Dosage: 50 ML. ONES DAILY PO
     Route: 048
     Dates: start: 20110611, end: 20110626

REACTIONS (4)
  - IMPAIRED DRIVING ABILITY [None]
  - FEELING ABNORMAL [None]
  - VOMITING [None]
  - VERTIGO [None]
